FAERS Safety Report 13026177 (Version 1)
Quarter: 2016Q4

REPORT INFORMATION
  Report Type: Spontaneous
  Country: US (occurrence: US)
  Receive Date: 20161214
  Receipt Date: 20161214
  Transmission Date: 20170207
  Serious: Yes (Other)
  Sender: FDA-Public Use
  Company Number: None

PATIENT
  Age: 62 Year
  Sex: Male
  Weight: 74.91 kg

DRUGS (11)
  1. FISH OIL [Concomitant]
     Active Substance: FISH OIL
  2. PREDNISOLONE AC 1% OPHTH SUSP 5ML [Suspect]
     Active Substance: PREDNISOLONE ACETATE
     Indication: EYE INFLAMMATION
     Dosage: ?          QUANTITY:1 DROP;?
     Route: 031
     Dates: start: 20160929, end: 20161002
  3. SYSTANE (HYPROMELLOSE 2910 (4000 MPA.S)) [Concomitant]
     Active Substance: HYPROMELLOSE 2910 (4000 MPA.S)
  4. KRILL OIL [Concomitant]
     Active Substance: DIETARY SUPPLEMENT
  5. VITAMIN D3 [Concomitant]
     Active Substance: CHOLECALCIFEROL
  6. COQ10 [Concomitant]
     Active Substance: UBIDECARENONE
  7. RESTASIS [Concomitant]
     Active Substance: CYCLOSPORINE
  8. BRAIN ESSENTIALS [Concomitant]
  9. VITAMIN C [Concomitant]
     Active Substance: ASCORBIC ACID
  10. SOMNAPURE [Concomitant]
  11. ALEVE [Concomitant]
     Active Substance: NAPROXEN SODIUM

REACTIONS (2)
  - Product substitution issue [None]
  - Ocular discomfort [None]

NARRATIVE: CASE EVENT DATE: 20161002
